FAERS Safety Report 10561283 (Version 2)
Quarter: 2014Q4

REPORT INFORMATION
  Report Type: Spontaneous
  Country: ES (occurrence: ES)
  Receive Date: 20141103
  Receipt Date: 20141201
  Transmission Date: 20150529
  Serious: Yes (Death)
  Sender: FDA-Public Use
  Company Number: ES-CUBIST PHARMACEUTICALS, INC.-2014CBST001477

PATIENT

DRUGS (7)
  1. CUBICIN [Suspect]
     Active Substance: DAPTOMYCIN
     Indication: MEDIASTINITIS
     Dosage: 300 MG, Q24H
     Route: 042
     Dates: start: 20100715, end: 20100801
  2. CUBICIN [Suspect]
     Active Substance: DAPTOMYCIN
     Indication: OFF LABEL USE
     Dosage: 5.4 MG/KG, Q24H
     Route: 042
     Dates: start: 20100715, end: 20100801
  3. LINEZOLID. [Concomitant]
     Active Substance: LINEZOLID
     Indication: MEDIASTINITIS
     Dosage: 600 MG, Q12H
     Route: 042
     Dates: start: 20100701, end: 20100715
  4. FLUCONAZOL [Concomitant]
     Active Substance: FLUCONAZOLE
     Indication: MEDIASTINITIS
     Dosage: 200 MG, Q24H
     Route: 042
     Dates: start: 20100721, end: 20100801
  5. CEFEPIME [Concomitant]
     Active Substance: CEFEPIME\CEFEPIME HYDROCHLORIDE
     Indication: MEDIASTINITIS
     Dosage: 1000 MG, Q24H
     Route: 042
     Dates: start: 20100702, end: 20100721
  6. COTRIMOXAZOL [Concomitant]
     Indication: MEDIASTINITIS
     Dosage: 80/400 MG, Q24H
     Route: 042
     Dates: start: 20100721, end: 20100801
  7. LEVOFLOXACIN. [Concomitant]
     Active Substance: LEVOFLOXACIN
     Indication: MEDIASTINITIS
     Dosage: 500 MG, Q24H
     Route: 042
     Dates: start: 20100725, end: 20100801

REACTIONS (3)
  - Multi-organ failure [Fatal]
  - Bacterial infection [Fatal]
  - Off label use [Unknown]
